FAERS Safety Report 4600464-4 (Version None)
Quarter: 2005Q1

REPORT INFORMATION
  Report Type: 
  Country: None (occurrence: None)
  Receive Date: 20050304
  Receipt Date: 20050225
  Transmission Date: 20050727
  Serious: Yes (Other)
  Sender: FDA-Public Use
  Company Number: 2005-02-0630

PATIENT
  Age: 55 Year
  Sex: Male

DRUGS (7)
  1. RINDERON (BETAMETHASONE SODIUM PHOSPHATE) INJECTABLE SOLUTION ^LIKE CE [Suspect]
     Dosage: 2 MG QD
  2. MORPHINE HCL ELIXIR [Suspect]
     Indication: CANCER PAIN
     Dosage: ORAL
     Route: 048
  3. METHYLPREDNISOLONE SODIUM SUCCINATE [Suspect]
     Dosage: 250 MG QD
  4. FENTANYL [Suspect]
     Indication: CANCER PAIN
     Dosage: 2.5MG TOTAL TOP-DERM
  5. IRINOTECAN HCL [Suspect]
     Indication: CHEMOTHERAPY
     Dosage: 2 CYCLES
  6. FLUOROURACIL [Concomitant]
  7. LEUCOVORIN CALCIUM [Concomitant]

REACTIONS (5)
  - ABDOMINAL PAIN [None]
  - DUODENAL ULCER PERFORATION [None]
  - INTESTINAL HYPOMOTILITY [None]
  - MALAISE [None]
  - PERITONITIS [None]
